FAERS Safety Report 13311639 (Version 2)
Quarter: 2017Q2

REPORT INFORMATION
  Report Type: Report from Study
  Country: None (occurrence: CH)
  Receive Date: 20170308
  Receipt Date: 20170411
  Transmission Date: 20170830
  Serious: No
  Sender: FDA-Public Use
  Company Number: CH-ABBVIE-17P-151-1898316-00

PATIENT
  Age: 80 Year
  Sex: Female

DRUGS (3)
  1. DUODOPA [Suspect]
     Active Substance: CARBIDOPA\LEVODOPA
     Indication: PARKINSON^S DISEASE
     Dosage: MORNING DOSE: 7,5ML, CONTINUOUS RATE: 3,4ML/H, EXTRA DOSE: 2,0ML; 16H THERAPY
     Route: 050
     Dates: start: 20160127, end: 20170224
  2. DUODOPA [Suspect]
     Active Substance: CARBIDOPA\LEVODOPA
     Route: 050
     Dates: start: 20170404
  3. ROTIGOTIN (NEUPRO) [Concomitant]
     Indication: PRODUCT USED FOR UNKNOWN INDICATION
     Route: 062

REACTIONS (5)
  - Device dislocation [Not Recovered/Not Resolved]
  - Stoma site hypergranulation [Unknown]
  - Incorrect route of drug administration [Unknown]
  - Stoma site discharge [Not Recovered/Not Resolved]
  - Device dislocation [Recovered/Resolved]

NARRATIVE: CASE EVENT DATE: 20170224
